FAERS Safety Report 6842672-8 (Version None)
Quarter: 2010Q3

REPORT INFORMATION
  Report Type: 
  Country: None (occurrence: None)
  Receive Date: 20100714
  Receipt Date: 20070801
  Transmission Date: 20110219
  Serious: No
  Sender: FDA-Public Use
  Company Number: US-PFIZER INC-2007065394

PATIENT
  Sex: Female
  Weight: 68.9 kg

DRUGS (7)
  1. CHANTIX [Suspect]
     Indication: SMOKING CESSATION THERAPY
     Dates: start: 20070718
  2. LISINOPRIL [Concomitant]
  3. LORAZEPAM [Concomitant]
  4. PERPHENAZINE [Concomitant]
  5. TEMAZEPAM [Concomitant]
  6. CRESTOR [Concomitant]
  7. ATENOLOL [Concomitant]

REACTIONS (3)
  - DECREASED APPETITE [None]
  - HEADACHE [None]
  - TOBACCO USER [None]
